FAERS Safety Report 25188387 (Version 1)
Quarter: 2025Q2

REPORT INFORMATION
  Report Type: Report from Study
  Country: US (occurrence: US)
  Receive Date: 20250411
  Receipt Date: 20250411
  Transmission Date: 20250716
  Serious: Yes (Hospitalization)
  Sender: ABBVIE
  Company Number: US-ABBVIE-6171873

PATIENT
  Age: 54 Year
  Sex: Male
  Weight: 106.59 kg

DRUGS (5)
  1. HUMIRA [Suspect]
     Active Substance: ADALIMUMAB
     Indication: Psoriatic arthropathy
     Dosage: NOT ABLE TO TAKE HUMIRA THE WHOLE JAN AND FEB-2025 DUE TO ISSUE WITH THE DOCTOR AND PHARMACY.
     Route: 058
     Dates: start: 20180307, end: 202412
  2. HUMIRA [Suspect]
     Active Substance: ADALIMUMAB
     Dosage: 40 MG
     Route: 058
     Dates: start: 202503
  3. METHOTREXATE [Concomitant]
     Active Substance: METHOTREXATE
     Indication: Psoriatic arthropathy
  4. FOLIC ACID [Concomitant]
     Active Substance: FOLIC ACID
     Indication: Psoriatic arthropathy
  5. GABAPENTIN [Concomitant]
     Active Substance: GABAPENTIN
     Indication: Psoriatic arthropathy

REACTIONS (8)
  - Heart rate increased [Not Recovered/Not Resolved]
  - Pain in extremity [Recovering/Resolving]
  - Pain [Not Recovered/Not Resolved]
  - Arthritis [Recovering/Resolving]
  - Heart rate irregular [Not Recovered/Not Resolved]
  - Pain [Recovering/Resolving]
  - Sleep apnoea syndrome [Not Recovered/Not Resolved]
  - Atrial fibrillation [Unknown]

NARRATIVE: CASE EVENT DATE: 20210101
